FAERS Safety Report 8831823 (Version 2)
Quarter: 2012Q4

REPORT INFORMATION
  Report Type: 
  Country: JP (occurrence: JP)
  Receive Date: 20121009
  Receipt Date: 20121029
  Transmission Date: 20130627
  Serious: Yes (Other)
  Sender: FDA-Public Use
  Company Number: JP-PFIZER INC-2012244511

PATIENT
  Age: 69 Year
  Sex: Female

DRUGS (3)
  1. METHYLPREDNISOLONE [Suspect]
     Indication: MYASTHENIA GRAVIS
     Dosage: 250 mg, UNK
     Dates: start: 20120426
  2. PREDNISOLONE [Concomitant]
     Dosage: UNK
     Route: 048
  3. TACROLIMUS [Concomitant]
     Dosage: UNK

REACTIONS (3)
  - Myasthenia gravis [Unknown]
  - Respiratory paralysis [Unknown]
  - Dyspnoea [Recovering/Resolving]
